APPROVED DRUG PRODUCT: QUINIDEX
Active Ingredient: QUINIDINE SULFATE
Strength: 300MG
Dosage Form/Route: TABLET, EXTENDED RELEASE;ORAL
Application: N012796 | Product #002
Applicant: WYETH PHARMACEUTICALS INC
Approved: Approved Prior to Jan 1, 1982 | RLD: No | RS: No | Type: DISCN